FAERS Safety Report 5638662-3 (Version None)
Quarter: 2008Q1

REPORT INFORMATION
  Report Type: 
  Country: None (occurrence: None)
  Receive Date: 20080131
  Receipt Date: 20071127
  Transmission Date: 20080703
  Serious: No
  Sender: FDA-Public Use
  Company Number: 163-21880-07111497

PATIENT
  Age: 74 Year
  Sex: Female

DRUGS (3)
  1. REVLIMID [Suspect]
     Indication: MULTIPLE MYELOMA
     Dosage: 15 MG, AS DIRECTED, ORAL
     Route: 048
     Dates: start: 20070817
  2. PROTONIX [Concomitant]
  3. WARFARIN SODIUM [Concomitant]

REACTIONS (1)
  - EPISTAXIS [None]
